FAERS Safety Report 19597766 (Version 1)
Quarter: 2021Q3

REPORT INFORMATION
  Report Type: Spontaneous
  Country: US (occurrence: US)
  Receive Date: 20210722
  Receipt Date: 20210722
  Transmission Date: 20211014
  Serious: Yes (Hospitalization)
  Sender: FDA-Public Use
  Company Number: None

PATIENT
  Age: 73 Year
  Sex: Female

DRUGS (13)
  1. SILDENAFIL. [Suspect]
     Active Substance: SILDENAFIL
     Indication: PULMONARY ARTERIAL HYPERTENSION
     Route: 048
     Dates: start: 20200414
  2. HYDRALAZINE [Concomitant]
     Active Substance: HYDRALAZINE HYDROCHLORIDE
     Dates: start: 20110311
  3. FREESTYLE TES LITE [Concomitant]
     Dates: start: 20210701
  4. ATROPINE SUL SOL 1% OP [Concomitant]
     Dates: start: 20210604
  5. BD PEN NEEDL MIS 31GX5,, [Concomitant]
     Dates: start: 20210201
  6. FREESTYLE MS LANCETS [Concomitant]
     Dates: start: 20201026
  7. LIDOCAINE PAD 5% [Concomitant]
     Dates: start: 20210622
  8. MIDRODRINE TAB 5MG [Concomitant]
     Dates: start: 20210208
  9. ELIQUIS TAB 2.5MG [Concomitant]
     Dates: start: 20210719
  10. MIRTAZAPINE TAB 7.5MG [Concomitant]
     Dates: start: 20210507
  11. PREDNISONE TAB 5MG [Concomitant]
     Active Substance: PREDNISONE
     Dates: start: 20210429
  12. METHOCARBAM TAB 500MG [Concomitant]
     Dates: start: 20210622
  13. DIGOXIN TAB 0.125MG [Concomitant]
     Dates: start: 20210701

REACTIONS (1)
  - Blood potassium increased [None]

NARRATIVE: CASE EVENT DATE: 20210701
